FAERS Safety Report 7061414-7 (Version None)
Quarter: 2010Q4

REPORT INFORMATION
  Report Type: 
  Country: None (occurrence: None)
  Receive Date: 20101026
  Receipt Date: 20101013
  Transmission Date: 20110411
  Serious: Yes (Other)
  Sender: FDA-Public Use
  Company Number: PHHY2010JP68734

PATIENT
  Age: 14 Year
  Sex: Female

DRUGS (29)
  1. TEGRETOL [Suspect]
     Indication: EPILEPSY
     Dosage: 900 MG, UNK
     Route: 048
  2. TEGRETOL [Suspect]
     Dosage: 1100 MG, UNK
     Route: 048
  3. TEGRETOL [Suspect]
     Dosage: 1300 MG, UNK
     Route: 048
  4. TEGRETOL [Suspect]
     Dosage: 1200 MG, UNK
     Route: 048
  5. VALPROATE SODIUM [Concomitant]
     Indication: EPILEPSY
     Dosage: 1800 MG, UNK
     Route: 048
  6. VALPROATE SODIUM [Concomitant]
     Dosage: 2200 MG, UNK
     Route: 048
  7. VALPROATE SODIUM [Concomitant]
     Dosage: 3000 MG, UNK
     Route: 048
  8. VALPROATE SODIUM [Concomitant]
     Dosage: 3600 MG, UNK
     Route: 048
  9. VALPROATE SODIUM [Concomitant]
     Dosage: 3200 MG, UNK
     Route: 048
  10. VALPROATE SODIUM [Concomitant]
     Dosage: 3000 MG, UNK
     Route: 048
  11. VALPROATE SODIUM [Concomitant]
     Dosage: UNK
  12. CLONAZEPAM [Concomitant]
     Indication: EPILEPSY
     Dosage: UNK
     Route: 048
  13. PHENYTOIN [Concomitant]
     Indication: EPILEPSY
     Dosage: 200 MG, UNK
     Route: 048
  14. PHENYTOIN [Concomitant]
     Dosage: 150 MG, UNK
     Route: 048
  15. DIAMOX SRC [Concomitant]
     Indication: EPILEPSY
     Dosage: 750 MG, UNK
     Route: 048
  16. DIAMOX SRC [Concomitant]
     Dosage: 500 MG, UNK
     Route: 048
  17. DIAMOX SRC [Concomitant]
     Dosage: 375 MG, UNK
     Route: 048
  18. DIAMOX SRC [Concomitant]
     Dosage: 250 MG, UNK
     Route: 048
  19. DIAMOX SRC [Concomitant]
     Dosage: 125 MG, UNK
     Route: 048
  20. GABAPENTIN [Concomitant]
     Indication: EPILEPSY
     Dosage: UNK
     Route: 048
  21. TOPIRAMATE [Concomitant]
     Indication: EPILEPSY
     Dosage: UNK
     Route: 048
  22. LAMOTRIGINE [Concomitant]
     Indication: EPILEPSY
     Dosage: 5 MG, UNK
     Route: 048
  23. LAMOTRIGINE [Concomitant]
     Dosage: 10 MG, UNK
     Route: 048
  24. LAMOTRIGINE [Concomitant]
     Dosage: 15 MG, UNK
     Route: 048
  25. LAMOTRIGINE [Concomitant]
     Dosage: 20 MG, UNK
     Route: 048
  26. LAMOTRIGINE [Concomitant]
     Dosage: 25 MG, UNK
     Route: 048
  27. LAMOTRIGINE [Concomitant]
     Dosage: 35 MG, UNK
     Route: 048
  28. LAMOTRIGINE [Concomitant]
     Dosage: 45 MG, UNK
     Route: 048
  29. LAMOTRIGINE [Concomitant]
     Dosage: 60 MG, UNK
     Route: 048
     Dates: start: 20090601

REACTIONS (5)
  - COMPLEX PARTIAL SEIZURES [None]
  - EPILEPTIC AURA [None]
  - FEAR [None]
  - GRAND MAL CONVULSION [None]
  - RENAL DISORDER [None]
